FAERS Safety Report 22021319 (Version 1)
Quarter: 2023Q1

REPORT INFORMATION
  Report Type: Spontaneous
  Country: MX (occurrence: None)
  Receive Date: 20230222
  Receipt Date: 20230222
  Transmission Date: 20230417
  Serious: Yes (Hospitalization, Other)
  Sender: FDA-Public Use
  Company Number: MX-ROCHE-3286389

PATIENT
  Sex: Female
  Weight: 62 kg

DRUGS (5)
  1. MABTHERA [Suspect]
     Active Substance: RITUXIMAB
     Indication: Neuromyelitis optica spectrum disorder
     Dosage: 1 G ON DAY 0 AND 1 G ON DAY 15, LAST DOSE WAS ADMINISTERED ON /SEP/2022,
     Route: 042
     Dates: start: 2016
  2. AZATHIOPRINE [Concomitant]
     Active Substance: AZATHIOPRINE
     Indication: Neuromyelitis optica spectrum disorder
     Route: 048
     Dates: start: 2016
  3. ATORVASTATIN [Concomitant]
     Active Substance: ATORVASTATIN
     Indication: Neuromyelitis optica spectrum disorder
     Route: 048
     Dates: start: 2016
  4. NITROFURANTOIN [Concomitant]
     Active Substance: NITROFURANTOIN
     Indication: Neuromyelitis optica spectrum disorder
     Route: 048
     Dates: start: 2016
  5. CORTISONE [Concomitant]
     Active Substance: CORTISONE

REACTIONS (6)
  - Ill-defined disorder [Unknown]
  - Off label use [Unknown]
  - Vision blurred [Recovered/Resolved]
  - Blindness unilateral [Recovered/Resolved]
  - Optic nerve disorder [Recovered/Resolved]
  - Neurogenic bladder [Recovering/Resolving]

NARRATIVE: CASE EVENT DATE: 20160101
